FAERS Safety Report 24624720 (Version 2)
Quarter: 2025Q1

REPORT INFORMATION
  Report Type: Spontaneous
  Country: FR (occurrence: FR)
  Receive Date: 20241115
  Receipt Date: 20250122
  Transmission Date: 20250408
  Serious: Yes (Other)
  Sender: AUROBINDO
  Company Number: FR-AstraZeneca-2024A201461

PATIENT
  Age: 61 Year
  Sex: Female

DRUGS (6)
  1. TAMOXIFEN [Suspect]
     Active Substance: TAMOXIFEN
     Indication: Thyroiditis fibrous chronic
     Dosage: 20 MILLIGRAM, ONCE A DAY, 20 MILLIGRAM, QD
     Route: 048
     Dates: end: 202205
  2. TAMOXIFEN [Suspect]
     Active Substance: TAMOXIFEN
     Dosage: 20 MILLIGRAM, ONCE A DAY, 20 MILLIGRAM, QD
     Route: 048
     Dates: end: 202205
  3. TAMOXIFEN [Suspect]
     Active Substance: TAMOXIFEN
     Dosage: 20 MILLIGRAM, ONCE A DAY, 20 MILLIGRAM, QD
     Route: 048
     Dates: end: 202205
  4. TAMOXIFEN [Suspect]
     Active Substance: TAMOXIFEN
     Dosage: 20 MILLIGRAM, ONCE A DAY, 20 MILLIGRAM, QD
     Route: 048
     Dates: end: 202205
  5. LEVOTHYROXINE [Concomitant]
     Active Substance: LEVOTHYROXINE
     Indication: Autoimmune hypothyroidism
     Dosage: 100 MICROGRAM, ONCE A DAY, 100 MICROGRAM, QD
     Route: 065
  6. PREDNISONE [Concomitant]
     Active Substance: PREDNISONE
     Indication: Product used for unknown indication
     Dosage: 10 MILLIGRAM, ONCE A DAY, 10 MILLIGRAM, QD
     Route: 065

REACTIONS (3)
  - Meningioma [Unknown]
  - Uterine haemorrhage [Unknown]
  - Off label use [Unknown]
